FAERS Safety Report 5063712-5 (Version None)
Quarter: 2006Q3

REPORT INFORMATION
  Report Type: 
  Country: None (occurrence: None)
  Receive Date: 20060727
  Receipt Date: 20060717
  Transmission Date: 20061208
  Serious: Yes (Hospitalization)
  Sender: FDA-Public Use
  Company Number: US-BRISTOL-MYERS SQUIBB COMPANY-13444740

PATIENT
  Age: 68 Year
  Sex: Female
  Weight: 107 kg

DRUGS (12)
  1. ABILIFY [Suspect]
     Indication: SCHIZOPHRENIA
     Route: 048
     Dates: start: 20060601, end: 20060701
  2. INSULIN [Concomitant]
  3. TRAMADOL HCL [Concomitant]
  4. METFORMIN [Concomitant]
     Dates: start: 19780101
  5. GLYBURIDE [Concomitant]
     Dates: start: 19780101
  6. HYDROCHLOROTHIAZIDE [Concomitant]
  7. LEXAPRO [Concomitant]
  8. ACTOS [Concomitant]
  9. ACTONEL [Concomitant]
  10. ZOCOR [Concomitant]
  11. RISPERDAL [Concomitant]
  12. DEPAKOTE [Concomitant]
     Dates: start: 19900101

REACTIONS (4)
  - CONFUSIONAL STATE [None]
  - CONVULSION [None]
  - DYSPHEMIA [None]
  - MOVEMENT DISORDER [None]
